FAERS Safety Report 6992935-0 (Version None)
Quarter: 2010Q3

REPORT INFORMATION
  Report Type: 
  Country: None (occurrence: None)
  Receive Date: 20100917
  Receipt Date: 20100908
  Transmission Date: 20110219
  Serious: Yes (Other)
  Sender: FDA-Public Use
  Company Number: US-SANOFI-AVENTIS-2010SA043224

PATIENT
  Age: 69 Year
  Sex: Female
  Weight: 84 kg

DRUGS (15)
  1. MULTAQ [Suspect]
     Indication: ATRIAL FIBRILLATION
     Route: 048
     Dates: start: 20100629, end: 20100706
  2. FLECAINIDE ACETATE [Concomitant]
  3. CARDIZEM [Concomitant]
  4. LIPITOR [Concomitant]
     Route: 048
  5. MAGNESIUM [Concomitant]
     Route: 048
  6. METFORMIN [Concomitant]
     Dosage: 4 DAILY
     Route: 048
  7. NEURONTIN [Concomitant]
  8. NIASPAN [Concomitant]
     Route: 048
  9. OMEPRAZOLE [Concomitant]
     Route: 048
  10. VERAPAMIL [Concomitant]
     Route: 048
  11. VITAMIN E [Concomitant]
     Dosage: DOSE:400 UNIT(S)
     Route: 048
  12. WARFARIN SODIUM [Concomitant]
  13. AVAPRO [Concomitant]
     Route: 048
  14. CALCIUM CARBONATE [Concomitant]
     Dosage: 311-232 MG
  15. FISH OIL [Concomitant]
     Dosage: 3 PO TWICE DAILY
     Route: 048

REACTIONS (6)
  - ABDOMINAL DISTENSION [None]
  - ANXIETY [None]
  - CARDIAC FAILURE [None]
  - DIARRHOEA [None]
  - DYSPNOEA [None]
  - WHEEZING [None]
